FAERS Safety Report 8818893 (Version 5)
Quarter: 2013Q1

REPORT INFORMATION
  Report Type: Spontaneous
  Country: CA (occurrence: CA)
  Receive Date: 20121001
  Receipt Date: 20130313
  Transmission Date: 20140127
  Serious: Yes (Death, Hospitalization, Other)
  Sender: FDA-Public Use
  Company Number: PHHY2012CA010931

PATIENT
  Age: 66 Year
  Sex: Female

DRUGS (3)
  1. SANDOSTATIN LAR [Suspect]
     Indication: NEUROENDOCRINE TUMOUR
     Dosage: 30 MG, ONCE A MONTH
     Route: 030
     Dates: start: 20110824
  2. SANDOSTATIN LAR [Suspect]
     Dosage: 50 MG, EVERY 03 WEEKS
     Route: 030
  3. SANDOSTATIN LAR [Suspect]
     Dosage: 60 MG, EVERY 3 WEEKS
     Route: 030
     Dates: end: 20130131

REACTIONS (11)
  - Death [Fatal]
  - Urinary tract infection [Unknown]
  - Fascial infection [Not Recovered/Not Resolved]
  - Urinary tract inflammation [Unknown]
  - Ascites [Unknown]
  - Injection site mass [Unknown]
  - Pain [Unknown]
  - Application site induration [Unknown]
  - Flushing [Unknown]
  - Injection site pain [Unknown]
  - Constipation [Unknown]
